FAERS Safety Report 7958386-7 (Version None)
Quarter: 2011Q4

REPORT INFORMATION
  Report Type: 
  Country: None (occurrence: None)
  Receive Date: 20111205
  Receipt Date: 20111128
  Transmission Date: 20120403
  Serious: Yes (Hospitalization)
  Sender: FDA-Public Use
  Company Number: US-MERCK-1111USA03682

PATIENT
  Age: 70 Year
  Sex: Female

DRUGS (6)
  1. NEXIUM [Concomitant]
     Route: 065
  2. GLUCOPHAGE XR [Concomitant]
     Route: 065
  3. JANUVIA [Suspect]
     Indication: DIABETES MELLITUS
     Route: 048
     Dates: start: 20080101
  4. DIOVAN [Concomitant]
     Route: 065
  5. LIPITOR [Concomitant]
     Route: 065
  6. CARDIZEM [Concomitant]
     Route: 065

REACTIONS (2)
  - BRAIN OEDEMA [None]
  - BLOOD SODIUM DECREASED [None]
